FAERS Safety Report 14625297 (Version 1)
Quarter: 2018Q1

REPORT INFORMATION
  Report Type: Spontaneous
  Country: US (occurrence: US)
  Receive Date: 20180312
  Receipt Date: 20180312
  Transmission Date: 20180509
  Serious: No
  Sender: FDA-Public Use
  Company Number: US-ENDO PHARMACEUTICALS INC-2017-005367

PATIENT
  Sex: Male

DRUGS (1)
  1. METHOCARBAMOL TABLETS 500MG [Suspect]
     Active Substance: METHOCARBAMOL
     Indication: MUSCLE RELAXANT THERAPY
     Dosage: 2 DF, BID
     Route: 048

REACTIONS (1)
  - Somnolence [Unknown]
